FAERS Safety Report 7383568-5 (Version None)
Quarter: 2011Q1

REPORT INFORMATION
  Report Type: 
  Country: None (occurrence: None)
  Receive Date: 20110330
  Receipt Date: 20110324
  Transmission Date: 20110831
  Serious: Yes (Other)
  Sender: FDA-Public Use
  Company Number: DE-PFIZER INC-2011065372

PATIENT
  Sex: Male
  Weight: 2.69 kg

DRUGS (2)
  1. VENLAFAXINE HCL [Suspect]
     Indication: DEPRESSION
     Dosage: 150 MG DAILY
     Route: 064
     Dates: start: 20091101, end: 20100808
  2. SEROQUEL [Suspect]
     Indication: DEPRESSION
     Dosage: 100 MG DAILY
     Route: 064
     Dates: start: 20100601, end: 20100808

REACTIONS (4)
  - CAESAREAN SECTION [None]
  - DRUG EXPOSURE DURING PREGNANCY [None]
  - SMALL FOR DATES BABY [None]
  - FOETAL HEART RATE DECREASED [None]
